FAERS Safety Report 4373457-2 (Version None)
Quarter: 2004Q2

REPORT INFORMATION
  Report Type: 
  Country: None (occurrence: None)
  Receive Date: 20040603
  Receipt Date: 20040519
  Transmission Date: 20050107
  Serious: Yes (Other)
  Sender: FDA-Public Use
  Company Number: 2004214837IE

PATIENT
  Age: 11 Year
  Sex: Male

DRUGS (2)
  1. GENOTROPIN [Suspect]
     Dosage: 0.8 MG, QD, SUBCUTANEOUS
     Route: 058
     Dates: start: 20030101
  2. THYROXIN (LEVOTHYROXINE SODIUM) [Concomitant]

REACTIONS (5)
  - ATTENTION DEFICIT/HYPERACTIVITY DISORDER [None]
  - FOETAL ALCOHOL SYNDROME [None]
  - HAIR TEXTURE ABNORMAL [None]
  - HEPATIC CIRRHOSIS [None]
  - HYPOTHYROIDISM [None]
